FAERS Safety Report 6050069-6 (Version None)
Quarter: 2009Q1

REPORT INFORMATION
  Report Type: 
  Country: None (occurrence: None)
  Receive Date: 20090121
  Receipt Date: 20090108
  Transmission Date: 20090719
  Serious: Yes (Other)
  Sender: FDA-Public Use
  Company Number: JPI-P-005682

PATIENT
  Age: 33 Year
  Sex: Female

DRUGS (2)
  1. XYREM [Suspect]
     Indication: HYPERSOMNIA
     Dosage: 4.5 GM (2.25 GM, 2 IN 1 D), ORAL, 6 GM (3 GM 2 IN 1 D), ORAL
     Route: 048
     Dates: start: 20060925, end: 20061012
  2. XYREM [Suspect]
     Indication: HYPERSOMNIA
     Dosage: 4.5 GM (2.25 GM, 2 IN 1 D), ORAL, 6 GM (3 GM 2 IN 1 D), ORAL
     Route: 048
     Dates: start: 20081013

REACTIONS (1)
  - SINUS OPERATION [None]
